FAERS Safety Report 6230997-9 (Version None)
Quarter: 2009Q2

REPORT INFORMATION
  Report Type: 
  Country: None (occurrence: None)
  Receive Date: 20090616
  Receipt Date: 20090608
  Transmission Date: 20091009
  Serious: Yes (Other)
  Sender: FDA-Public Use
  Company Number: FR-ROCHE-628526

PATIENT
  Sex: Female
  Weight: 62 kg

DRUGS (10)
  1. PEGASYS [Suspect]
     Indication: HEPATITIS C
     Route: 058
     Dates: start: 20090102, end: 20090416
  2. COPEGUS [Suspect]
     Indication: HEPATITIS C
     Route: 048
     Dates: start: 20090102
  3. FOSAVANCE [Concomitant]
     Route: 048
  4. PAROXETINE HCL [Concomitant]
     Dosage: DOSAGE: 1 DOSE DAILY
     Route: 048
  5. PRAZEPAM [Concomitant]
  6. FORLAX [Concomitant]
  7. DOLIPRANE [Concomitant]
  8. MOPRAL [Concomitant]
     Route: 048
  9. DITROPAN [Concomitant]
     Route: 048
  10. ZOLPIDEM TARTRATE [Concomitant]
     Route: 048

REACTIONS (1)
  - PLEURAL EFFUSION [None]
